FAERS Safety Report 24394013 (Version 1)
Quarter: 2024Q4

REPORT INFORMATION
  Report Type: Report from Study
  Country: US (occurrence: US)
  Receive Date: 20241003
  Receipt Date: 20241003
  Transmission Date: 20250115
  Serious: Yes (Other)
  Sender: ABBVIE
  Company Number: US-ABBVIE-5948734

PATIENT
  Sex: Female

DRUGS (1)
  1. SKYRIZI [Suspect]
     Active Substance: RISANKIZUMAB-RZAA
     Indication: Product used for unknown indication
     Route: 058
     Dates: start: 20230629

REACTIONS (5)
  - Hysterectomy [Recovered/Resolved]
  - Rash papular [Recovered/Resolved]
  - Skin discolouration [Recovered/Resolved]
  - Psoriasis [Unknown]
  - Skin fissures [Recovering/Resolving]
